FAERS Safety Report 23423371 (Version 1)
Quarter: 2024Q1

REPORT INFORMATION
  Report Type: Spontaneous
  Country: US (occurrence: None)
  Receive Date: 20240119
  Receipt Date: 20240119
  Transmission Date: 20240409
  Serious: Yes (unspecified)
  Sender: FDA-Public Use
  Company Number: None

PATIENT
  Age: 75 Year
  Sex: Male
  Weight: 102.8 kg

DRUGS (3)
  1. OCTAGAM IMMUNE GLOBULIN (HUMAN) [Suspect]
     Active Substance: HUMAN IMMUNOGLOBULIN G
     Indication: Chronic inflammatory demyelinating polyradiculoneuropathy
     Dosage: OTHER FREQUENCY : QD X 4 DAYS Q28;?
     Route: 041
     Dates: start: 20240117, end: 20240117
  2. Diphenhydramine 25mg cap [Concomitant]
     Dates: start: 20240117, end: 20240117
  3. Acetaminophen 650mg tab [Concomitant]
     Dates: start: 20240117, end: 20240117

REACTIONS (7)
  - Rash [None]
  - Blister [None]
  - Infusion related reaction [None]
  - No reaction on previous exposure to drug [None]
  - Therapy interrupted [None]
  - Erythema [None]
  - Feeling hot [None]

NARRATIVE: CASE EVENT DATE: 20240117
